FAERS Safety Report 11622888 (Version 1)
Quarter: 2015Q4

REPORT INFORMATION
  Report Type: Spontaneous
  Country: US (occurrence: US)
  Receive Date: 20151013
  Receipt Date: 20151013
  Transmission Date: 20160304
  Serious: No
  Sender: FDA-Public Use
  Company Number: US-JNJFOC-20150410089

PATIENT
  Age: 7 Year
  Sex: Male
  Weight: 28.58 kg

DRUGS (2)
  1. FLONASE [Concomitant]
     Active Substance: FLUTICASONE PROPIONATE
     Indication: MULTIPLE ALLERGIES
     Dosage: ONE SQUIRT DAILY
     Route: 065
  2. CHILDRENS TYLENOL [Suspect]
     Active Substance: ACETAMINOPHEN
     Indication: PYREXIA
     Dosage: 2 1/2 TEASPOONS
     Route: 048
     Dates: start: 20150407, end: 20150407

REACTIONS (2)
  - Expired product administered [Unknown]
  - Drug ineffective [Unknown]
